FAERS Safety Report 9609263 (Version 2)
Quarter: 2013Q4

REPORT INFORMATION
  Report Type: Spontaneous
  Country: US (occurrence: US)
  Receive Date: 20131009
  Receipt Date: 20131009
  Transmission Date: 20140711
  Serious: No
  Sender: FDA-Public Use
  Company Number: US-PURDUE-USA-2012-0094501

PATIENT
  Age: 49 Year
  Sex: Female

DRUGS (3)
  1. BUTRANS [Suspect]
     Indication: NEURALGIA
     Dosage: 20 MCG, UNK
     Route: 062
     Dates: start: 201210, end: 201211
  2. BUTRANS [Suspect]
     Dosage: 20 MCG, UNK
     Route: 062
     Dates: start: 20130110, end: 20130116
  3. FLONASE [Concomitant]
     Indication: PROPHYLAXIS
     Dosage: UNK
     Route: 061
     Dates: start: 20130110

REACTIONS (5)
  - Application site discolouration [Not Recovered/Not Resolved]
  - Inadequate analgesia [Recovered/Resolved]
  - Application site erythema [Unknown]
  - Application site pain [Unknown]
  - Application site pruritus [Not Recovered/Not Resolved]
